FAERS Safety Report 8901405 (Version 2)
Quarter: 2012Q4

REPORT INFORMATION
  Report Type: 
  Country: IN (occurrence: IN)
  Receive Date: 20121109
  Receipt Date: 20121214
  Transmission Date: 20130627
  Serious: Yes (Death)
  Sender: FDA-Public Use
  Company Number: IN-009507513-1211IND002831

PATIENT
  Age: 53 Year
  Sex: Female

DRUGS (1)
  1. JANUMET [Suspect]
     Dosage: UNK UNK, bid
     Route: 048

REACTIONS (3)
  - Respiratory arrest [Fatal]
  - Nausea [Unknown]
  - Decreased appetite [Unknown]
